FAERS Safety Report 8512295-3 (Version None)
Quarter: 2012Q3

REPORT INFORMATION
  Report Type: 
  Country: None (occurrence: None)
  Receive Date: 20120716
  Receipt Date: 20120705
  Transmission Date: 20120928
  Serious: Yes (Other)
  Sender: FDA-Public Use
  Company Number: ES-ACTELION-A-CH2012-68364

PATIENT
  Sex: Female

DRUGS (1)
  1. TRACLEER [Suspect]
     Indication: PRODUCT USED FOR UNKNOWN INDICATION
     Dosage: 125 MG, BID
     Route: 048
     Dates: start: 20101201

REACTIONS (11)
  - GAMMA-GLUTAMYLTRANSFERASE INCREASED [None]
  - LIVER DISORDER [None]
  - RETROGRADE PORTAL VEIN FLOW [None]
  - HEPATIC ENZYME INCREASED [None]
  - PORTAL HYPERTENSION [None]
  - ALANINE AMINOTRANSFERASE INCREASED [None]
  - BILIARY CIRRHOSIS PRIMARY [None]
  - ASPARTATE AMINOTRANSFERASE [None]
  - SPLENOMEGALY [None]
  - PORTAL VEIN FLOW DECREASED [None]
  - VARICES OESOPHAGEAL [None]
